FAERS Safety Report 4371046-7 (Version None)
Quarter: 2004Q2

REPORT INFORMATION
  Report Type: 
  Country: None (occurrence: None)
  Receive Date: 20040527
  Receipt Date: 20040511
  Transmission Date: 20050107
  Serious: Yes (Other)
  Sender: FDA-Public Use
  Company Number: 2004-DE-02777GD

PATIENT

DRUGS (7)
  1. CYCLOPHOSPHAMIDE [Suspect]
     Dosage: 50 MG/KG, IV
     Route: 042
  2. BUSULFAN (BUSULFAN) [Suspect]
     Dosage: 20 TO 40 MG/M2, PO
     Route: 048
  3. ANTITHYMOCYTE GLOBULIN (ANTITHYMOCYTE IMMUNOGLOBULIN) [Suspect]
     Dosage: 30 MG/KG, IV
     Route: 042
  4. CYCLOSPORINE [Suspect]
     Indication: GRAFT VERSUS HOST DISEASE
  5. CYCLOSPORINE [Suspect]
     Indication: PROPHYLAXIS
  6. METHYLPREDNISOLONE [Suspect]
     Indication: GRAFT VERSUS HOST DISEASE
  7. METHYLPREDNISOLONE [Suspect]
     Indication: PROPHYLAXIS

REACTIONS (1)
  - SHUNT INFECTION [None]
